FAERS Safety Report 20836969 (Version 1)
Quarter: 2022Q2

REPORT INFORMATION
  Report Type: Report from Study
  Country: US (occurrence: None)
  Receive Date: 20220517
  Receipt Date: 20220517
  Transmission Date: 20220720
  Serious: Yes (Death, Hospitalization)
  Sender: FDA-Public Use
  Company Number: US-ROCHE-3045917

PATIENT
  Age: 64 Year
  Sex: Male
  Weight: 104.3 kg

DRUGS (3)
  1. ATEZOLIZUMAB [Suspect]
     Active Substance: ATEZOLIZUMAB
     Indication: Small cell lung cancer
     Dosage: LAST ADMINISTERED DATE: 16/DEC/2021
     Route: 041
     Dates: start: 20211216
  2. CARBOPLATIN [Suspect]
     Active Substance: CARBOPLATIN
     Indication: Small cell lung cancer
     Dosage: LAST ADMINISTERED DATE: 16/DEC/2021
     Route: 042
     Dates: start: 20211216
  3. ETOPOSIDE [Suspect]
     Active Substance: ETOPOSIDE
     Indication: Small cell lung cancer
     Dosage: LAST ADMINISTERED DATE: 18/DEC/2021?TOTAL DOSE ADMINISTERED THIS COURSE: 227 MG
     Route: 042
     Dates: start: 20211216

REACTIONS (6)
  - Cardiac arrest [Fatal]
  - Atrial fibrillation [Recovering/Resolving]
  - Ejection fraction decreased [Recovering/Resolving]
  - Hyponatraemia [Recovered/Resolved]
  - Hypotension [Recovered/Resolved]
  - SARS-CoV-2 test positive [Recovering/Resolving]

NARRATIVE: CASE EVENT DATE: 20220105
